FAERS Safety Report 16967132 (Version 2)
Quarter: 2019Q4

REPORT INFORMATION
  Report Type: Spontaneous
  Country: US (occurrence: US)
  Receive Date: 20191028
  Receipt Date: 20191101
  Transmission Date: 20200122
  Serious: No
  Sender: FDA-Public Use
  Company Number: US-JNJFOC-20191029137

PATIENT
  Age: 58 Year
  Sex: Female
  Weight: 81.72 kg

DRUGS (9)
  1. SPRAVATO [Suspect]
     Active Substance: ESKETAMINE
     Indication: DEPRESSION
     Dosage: SECOND DOSE: 04-OCT-2019
     Dates: start: 20190930
  2. VIIBRYD [Concomitant]
     Active Substance: VILAZODONE HYDROCHLORIDE
     Dates: start: 201909
  3. ZYPREXA [Concomitant]
     Active Substance: OLANZAPINE
     Dates: start: 20191010
  4. METOPROLOL. [Concomitant]
     Active Substance: METOPROLOL
  5. LAMICTAL [Concomitant]
     Active Substance: LAMOTRIGINE
  6. KLONOPIN [Concomitant]
     Active Substance: CLONAZEPAM
  7. VYVANSE [Concomitant]
     Active Substance: LISDEXAMFETAMINE DIMESYLATE
  8. TRINTELLIX [Concomitant]
     Active Substance: VORTIOXETINE HYDROBROMIDE
     Dates: end: 201909
  9. CBD OIL [Concomitant]
     Active Substance: CANNABIDIOL\HERBALS

REACTIONS (9)
  - Crying [Recovered/Resolved]
  - Depression [Unknown]
  - Emotional disorder [Not Recovered/Not Resolved]
  - Incorrect dosage administered [Not Recovered/Not Resolved]
  - Hypotension [Not Recovered/Not Resolved]
  - Insomnia [Recovered/Resolved]
  - Fatigue [Recovered/Resolved]
  - Lethargy [Not Recovered/Not Resolved]
  - Dissociation [Not Recovered/Not Resolved]

NARRATIVE: CASE EVENT DATE: 20190930
